FAERS Safety Report 9044294 (Version 4)
Quarter: 2013Q3

REPORT INFORMATION
  Report Type: Spontaneous
  Country: US (occurrence: US)
  Receive Date: 20130131
  Receipt Date: 20130830
  Transmission Date: 20140515
  Serious: Yes (Hospitalization)
  Sender: FDA-Public Use
  Company Number: US-BIOGENIDEC-2013BI006962

PATIENT
  Age: 45 Year
  Sex: Female
  Weight: 70 kg

DRUGS (24)
  1. AVONEX [Suspect]
     Indication: SECONDARY PROGRESSIVE MULTIPLE SCLEROSIS
     Route: 030
     Dates: start: 200203
  2. AVONEX [Suspect]
     Indication: SECONDARY PROGRESSIVE MULTIPLE SCLEROSIS
     Route: 030
     Dates: start: 20020913
  3. PROVENTIL INHALER [Concomitant]
  4. ADVAIR DISKUS [Concomitant]
  5. THEOPHYLLINE [Concomitant]
     Route: 048
  6. ALLEGRA [Concomitant]
     Route: 048
  7. TESSALON PERLES [Concomitant]
     Route: 048
  8. TOPAMAX [Concomitant]
     Route: 048
  9. IMITREX [Concomitant]
     Route: 048
  10. PROVIGIL [Concomitant]
     Route: 048
  11. ALPRAZOLAM [Concomitant]
     Route: 048
  12. VONEX (NOS) [Concomitant]
  13. ZOFRAN [Concomitant]
     Route: 048
  14. KEPPRA [Concomitant]
     Route: 048
  15. TIZANIDINE [Concomitant]
     Route: 048
  16. PRENATE GT VITAMIN [Concomitant]
     Route: 048
  17. KLOR-CON [Concomitant]
     Route: 048
  18. LASIX [Concomitant]
     Route: 048
  19. FERROUS SULFATE [Concomitant]
     Route: 048
  20. LOESTRIN FE [Concomitant]
     Route: 048
  21. CALCIUM CITRATE WITH VIT D [Concomitant]
     Route: 048
  22. SOLUMEDROL [Concomitant]
     Route: 042
  23. MOBIC [Concomitant]
     Route: 048
  24. ACIPHEX [Concomitant]
     Route: 048

REACTIONS (28)
  - Cellulitis [Recovered/Resolved]
  - Leukocytosis [Unknown]
  - Decreased immune responsiveness [Not Recovered/Not Resolved]
  - Abscess [Unknown]
  - Injection site warmth [Unknown]
  - Night sweats [Unknown]
  - Pyrexia [Unknown]
  - Decreased appetite [Unknown]
  - Nausea [Unknown]
  - Pain in extremity [Unknown]
  - Injection site erythema [Unknown]
  - Chills [Unknown]
  - Headache [Unknown]
  - Bronchitis [Not Recovered/Not Resolved]
  - Tooth infection [Unknown]
  - Infection [Unknown]
  - Tooth loss [Unknown]
  - Urinary retention [Not Recovered/Not Resolved]
  - Hemiparesis [Not Recovered/Not Resolved]
  - Micturition urgency [Not Recovered/Not Resolved]
  - Dental caries [Recovered/Resolved]
  - Gingival recession [Not Recovered/Not Resolved]
  - Asthma [Not Recovered/Not Resolved]
  - Tooth fracture [Unknown]
  - Oedema mouth [Unknown]
  - Seasonal allergy [Unknown]
  - Multiple sclerosis relapse [Unknown]
  - Fatigue [Not Recovered/Not Resolved]
